FAERS Safety Report 5535319-4 (Version None)
Quarter: 2007Q4

REPORT INFORMATION
  Report Type: 
  Country: None (occurrence: None)
  Receive Date: 20071206
  Receipt Date: 20071127
  Transmission Date: 20080405
  Serious: Yes (Hospitalization)
  Sender: FDA-Public Use
  Company Number: FR-BAYER-200715122NA

PATIENT
  Age: 83 Year
  Sex: Female

DRUGS (5)
  1. SOTALOL HCL [Suspect]
     Indication: DRUG USE FOR UNKNOWN INDICATION
     Dates: start: 20070701
  2. CORDARONE [Suspect]
  3. LASIX [Concomitant]
  4. RAMIPRIL [Concomitant]
  5. KARDEGIC [Concomitant]

REACTIONS (2)
  - BRONCHOPNEUMONIA [None]
  - LUNG INFECTION [None]
